FAERS Safety Report 22169065 (Version 2)
Quarter: 2023Q2

REPORT INFORMATION
  Report Type: Spontaneous
  Country: US (occurrence: US)
  Receive Date: 20230404
  Receipt Date: 20230405
  Transmission Date: 20230722
  Serious: Yes (Hospitalization, Other)
  Sender: FDA-Public Use
  Company Number: US-ABBVIE-4714803

PATIENT
  Sex: Male

DRUGS (1)
  1. DIVALPROEX SODIUM [Suspect]
     Active Substance: DIVALPROEX SODIUM
     Indication: Schizoaffective disorder
     Route: 048
     Dates: end: 20230314

REACTIONS (3)
  - Pancreatitis [Recovering/Resolving]
  - Weight increased [Unknown]
  - Diabetes mellitus [Unknown]
